FAERS Safety Report 4768432-X (Version None)
Quarter: 2005Q3

REPORT INFORMATION
  Report Type: 
  Country: None (occurrence: None)
  Receive Date: 20050914
  Receipt Date: 20050707
  Transmission Date: 20060218
  Serious: Yes (Hospitalization)
  Sender: FDA-Public Use
  Company Number: AT-ROCHE-409924

PATIENT
  Age: 48 Year
  Sex: Female
  Weight: 59 kg

DRUGS (8)
  1. CAPECITABINE [Suspect]
     Indication: BREAST CANCER
     Dosage: ON DAYS ONE TO FOURTEEN OF EACH THREE WEEK CYCLE DOSE FORM ^PILLS^
     Route: 048
     Dates: start: 20050701, end: 20050707
  2. EPIRUBICIN [Suspect]
     Indication: BREAST CANCER
     Route: 042
     Dates: start: 20050701
  3. DOCETAXEL [Suspect]
     Indication: BREAST CANCER
     Route: 042
     Dates: start: 20050701
  4. FORTECORTIN [Concomitant]
     Dates: start: 20050630, end: 20050704
  5. NEUPOGEN [Concomitant]
     Dates: start: 20050703
  6. NAVOBAN [Concomitant]
     Dosage: DRUG NAME REPORTED AS ^NAZOBLEUR^
     Dates: start: 20050630, end: 20050704
  7. PASPERTIN [Concomitant]
  8. PANTOPRAZOLE SODIUM [Concomitant]

REACTIONS (2)
  - GENERAL PHYSICAL HEALTH DETERIORATION [None]
  - RESTLESSNESS [None]
